FAERS Safety Report 6418561-X (Version None)
Quarter: 2009Q4

REPORT INFORMATION
  Report Type: 
  Country: None (occurrence: None)
  Receive Date: 20091028
  Receipt Date: 20091021
  Transmission Date: 20100525
  Serious: Yes (Life-Threatening, Other)
  Sender: FDA-Public Use
  Company Number: DE-AMGEN-UK350626

PATIENT
  Sex: Male
  Weight: 96 kg

DRUGS (2)
  1. NPLATE [Suspect]
     Indication: IDIOPATHIC THROMBOCYTOPENIC PURPURA
     Route: 058
     Dates: start: 20090417, end: 20090709
  2. DEXAMETHASONE [Concomitant]
     Dates: start: 20090402, end: 20090511

REACTIONS (1)
  - DRUG INEFFECTIVE [None]
